FAERS Safety Report 6285261-9 (Version None)
Quarter: 2009Q3

REPORT INFORMATION
  Report Type: 
  Country: None (occurrence: None)
  Receive Date: 20090727
  Receipt Date: 20090721
  Transmission Date: 20100115
  Serious: Yes (Other)
  Sender: FDA-Public Use
  Company Number: GB-JNJFOC-20090601180

PATIENT
  Sex: Male
  Weight: 88.2 kg

DRUGS (8)
  1. DURAGESIC-100 [Suspect]
     Route: 062
  2. DURAGESIC-100 [Suspect]
     Indication: CANCER PAIN
     Route: 062
  3. ASPIRIN [Concomitant]
     Indication: MYOCARDIAL ISCHAEMIA
     Route: 065
  4. SIMVASTATIN [Concomitant]
     Indication: MYOCARDIAL ISCHAEMIA
     Route: 065
  5. ATENOLOL [Concomitant]
     Indication: HYPERTENSION
     Route: 065
  6. FUROSEMIDE [Concomitant]
     Indication: MYOCARDIAL ISCHAEMIA
     Route: 065
  7. SPIRONOLACTONE [Concomitant]
     Indication: MYOCARDIAL ISCHAEMIA
     Route: 065
  8. OCTREOTIDE ACETATE [Concomitant]
     Indication: CARCINOID TUMOUR
     Route: 065

REACTIONS (2)
  - OFF LABEL USE [None]
  - VISUAL ACUITY REDUCED [None]
